FAERS Safety Report 9649414 (Version 1)
Quarter: 2013Q4

REPORT INFORMATION
  Report Type: Spontaneous
  Country: JP (occurrence: JP)
  Receive Date: 20131028
  Receipt Date: 20131028
  Transmission Date: 20140711
  Serious: Yes (Other)
  Sender: FDA-Public Use
  Company Number: PHHY2013JP120017

PATIENT
  Age: 65 Year
  Sex: Male

DRUGS (2)
  1. CEFTRIAXONE SODIUM SANDOZ [Suspect]
     Indication: MENINGISM
     Dosage: 2 G/DAY
     Route: 042
     Dates: start: 20131005
  2. VANCOMYCIN HYDROCHLORIDE [Concomitant]
     Route: 042

REACTIONS (1)
  - Cholecystitis [Recovering/Resolving]
